FAERS Safety Report 7222928-X (Version None)
Quarter: 2011Q1

REPORT INFORMATION
  Report Type: 
  Country: None (occurrence: None)
  Receive Date: 20110112
  Receipt Date: 20110104
  Transmission Date: 20110831
  Serious: Yes (Hospitalization, Other)
  Sender: FDA-Public Use
  Company Number: JP-JNJFOC-20100906225

PATIENT
  Sex: Male
  Weight: 59 kg

DRUGS (11)
  1. ALTAT [Concomitant]
     Indication: GASTRITIS
     Route: 048
  2. GOLIMUMAB [Suspect]
     Indication: RHEUMATOID ARTHRITIS
     Route: 058
  3. MERCAZOLE [Concomitant]
     Indication: HYPERTHYROIDISM
     Route: 048
  4. MEDROL [Concomitant]
     Indication: RHEUMATOID ARTHRITIS
     Route: 048
  5. MELOXICAM [Concomitant]
     Indication: RHEUMATOID ARTHRITIS
     Route: 048
  6. GOLIMUMAB [Suspect]
     Route: 058
  7. FOLIAMIN [Concomitant]
     Indication: PROPHYLAXIS
     Route: 048
  8. URSO 250 [Concomitant]
     Route: 048
  9. METOLATE [Concomitant]
     Indication: RHEUMATOID ARTHRITIS
     Route: 048
  10. DICLOFENAC SODIUM [Concomitant]
     Indication: RHEUMATOID ARTHRITIS
     Route: 048
  11. VOLTAREN [Concomitant]
     Indication: RHEUMATOID ARTHRITIS
     Route: 061

REACTIONS (1)
  - PYELONEPHRITIS ACUTE [None]
